FAERS Safety Report 6342081-4 (Version None)
Quarter: 2009Q3

REPORT INFORMATION
  Report Type: 
  Country: None (occurrence: None)
  Receive Date: 20090903
  Receipt Date: 20090903
  Transmission Date: 20100115
  Serious: No
  Sender: FDA-Public Use
  Company Number: None

PATIENT
  Age: 47 Year
  Sex: Female
  Weight: 77.1115 kg

DRUGS (1)
  1. REMICADE [Suspect]
     Indication: CROHN'S DISEASE
     Dosage: 5MG
     Dates: start: 20081118, end: 20090624

REACTIONS (4)
  - ANKLE FRACTURE [None]
  - INFLAMMATION [None]
  - JOINT SWELLING [None]
  - LUPUS-LIKE SYNDROME [None]
